FAERS Safety Report 6257466-4 (Version None)
Quarter: 2009Q2

REPORT INFORMATION
  Report Type: 
  Country: None (occurrence: None)
  Receive Date: 20090630
  Receipt Date: 20090630
  Transmission Date: 20091009
  Serious: Yes (Other)
  Sender: FDA-Public Use
  Company Number: None

PATIENT
  Sex: Female
  Weight: 83.4619 kg

DRUGS (1)
  1. ACTOS [Suspect]
     Indication: TYPE 2 DIABETES MELLITUS
     Dosage: 45MG 1XDAY PO
     Route: 048

REACTIONS (8)
  - CARDIAC FAILURE CONGESTIVE [None]
  - DYSPNOEA [None]
  - EXERCISE LACK OF [None]
  - FATIGUE [None]
  - HYPERPHAGIA [None]
  - JOINT SPRAIN [None]
  - OEDEMA PERIPHERAL [None]
  - WEIGHT INCREASED [None]
